FAERS Safety Report 8923020 (Version 1)
Quarter: 2012Q4

REPORT INFORMATION
  Report Type: 
  Country: GB (occurrence: GB)
  Receive Date: 20121123
  Receipt Date: 20121123
  Transmission Date: 20130627
  Serious: Yes (Other)
  Sender: FDA-Public Use
  Company Number: GB-PFIZER INC-2012289497

PATIENT
  Age: 61 Year
  Sex: Male
  Weight: 100 kg

DRUGS (11)
  1. CHAMPIX [Suspect]
     Indication: SMOKING CESSATION THERAPY
     Dosage: 1mg 1x/daily
     Route: 048
     Dates: start: 20121004, end: 20121028
  2. INFLUENZA VIRUS VACCINE [Concomitant]
     Dosage: UNK
     Route: 030
     Dates: start: 201210
  3. LANSOPRAZOLE [Concomitant]
     Dosage: 30mg
     Route: 048
  4. LISINOPRIL [Concomitant]
     Dosage: 5 mg, 1x/day
     Route: 048
  5. TRAMADOL [Concomitant]
     Dosage: 50 mg, UNK
     Route: 048
  6. VENTOLIN [Concomitant]
     Route: 055
  7. SERETIDE [Concomitant]
     Route: 055
  8. SPIRIVA [Concomitant]
     Route: 055
  9. PARACETAMOL [Concomitant]
  10. GAVISCON [Concomitant]
  11. ATORVASTATIN [Concomitant]
     Indication: HYPERCHOLESTERAEMIA
     Dosage: 10mg

REACTIONS (6)
  - Headache [Recovering/Resolving]
  - Blister [Recovering/Resolving]
  - Dyspepsia [Recovering/Resolving]
  - Vision blurred [Recovering/Resolving]
  - Chest pain [Recovering/Resolving]
  - Pain [Recovering/Resolving]
